FAERS Safety Report 24408238 (Version 1)
Quarter: 2024Q4

REPORT INFORMATION
  Report Type: Report from Study
  Country: GB (occurrence: GB)
  Receive Date: 20241007
  Receipt Date: 20241007
  Transmission Date: 20250115
  Serious: Yes (Other)
  Sender: IPSEN
  Company Number: GB-IPSEN Group, Research and Development-2023-16032

PATIENT
  Age: 60 Year
  Sex: Female

DRUGS (2)
  1. LANREOTIDE ACETATE [Suspect]
     Active Substance: LANREOTIDE ACETATE
     Indication: Neuroendocrine tumour
     Dosage: 120MG/0.5ML, VIA DEEP SUBCUTANEOUS ROUTE, IPSEN LTD; ONE PRE-FILLED DISPOSABLE INJECTION
     Route: 058
  2. LANREOTIDE ACETATE [Suspect]
     Active Substance: LANREOTIDE ACETATE
     Route: 065

REACTIONS (8)
  - Abdominal discomfort [Not Recovered/Not Resolved]
  - Diarrhoea [Not Recovered/Not Resolved]
  - Breast mass [Not Recovered/Not Resolved]
  - Rash [Recovering/Resolving]
  - Vomiting [Unknown]
  - Off label use [Unknown]
  - Product label issue [Unknown]
  - Nausea [Unknown]

NARRATIVE: CASE EVENT DATE: 20230623
